FAERS Safety Report 25659635 (Version 2)
Quarter: 2025Q4

REPORT INFORMATION
  Report Type: Spontaneous
  Country: JP (occurrence: JP)
  Receive Date: 20250808
  Receipt Date: 20251230
  Transmission Date: 20260117
  Serious: Yes (Hospitalization)
  Sender: ORGANON
  Company Number: JP-JT-EVA202503305ORGANON

PATIENT

DRUGS (1)
  1. VTAMA [Suspect]
     Active Substance: TAPINAROF
     Indication: Psoriasis
     Dosage: UNK
     Route: 048

REACTIONS (3)
  - Pemphigoid [Recovered/Resolved]
  - Blister [Recovered/Resolved]
  - Dermatitis contact [Recovered/Resolved]
